FAERS Safety Report 14571953 (Version 16)
Quarter: 2018Q3

REPORT INFORMATION
  Report Type: Spontaneous
  Country: DE (occurrence: DE)
  Receive Date: 20180226
  Receipt Date: 20180813
  Transmission Date: 20181010
  Serious: Yes (Hospitalization, Other)
  Sender: FDA-Public Use
  Company Number: PHHY2018DE028938

PATIENT
  Sex: Female

DRUGS (44)
  1. PREDNISOLONE. [Suspect]
     Active Substance: PREDNISOLONE
     Indication: B-CELL LYMPHOMA
     Dosage: UNK
     Route: 048
  2. TORSEMIDE. [Concomitant]
     Active Substance: TORSEMIDE
     Dosage: 10 MG, QD (1 IN 1 D)
     Route: 048
  3. PREGABALIN. [Concomitant]
     Active Substance: PREGABALIN
     Dosage: 50 MG, TID (3 IN 1 D)
     Route: 048
  4. RITUXIMAB. [Suspect]
     Active Substance: RITUXIMAB
     Dosage: 772 MG, CYCLIC  (ONCE PER CYCLE)
     Route: 042
     Dates: start: 20171218
  5. DOXORUBICIN [Suspect]
     Active Substance: DOXORUBICIN
     Dosage: 103 MG,QCY
     Route: 042
     Dates: start: 20171121
  6. PREDNISOLONE. [Suspect]
     Active Substance: PREDNISOLONE
     Dosage: 100 MG, CYCLIC (5 TIMES PER CYCLE)
     Route: 048
     Dates: start: 20171111
  7. VINCRISTINE [Suspect]
     Active Substance: VINCRISTINE
     Dosage: 2 MG, QCY
     Route: 042
     Dates: start: 20171121
  8. TORSEMIDE. [Concomitant]
     Active Substance: TORSEMIDE
     Dosage: 5 MG,QD
     Route: 048
     Dates: start: 20170101
  9. RAMIPRIL. [Concomitant]
     Active Substance: RAMIPRIL
     Dosage: 5 MG,PRN
     Route: 048
     Dates: start: 2017
  10. CIPROFLOXACIN. [Concomitant]
     Active Substance: CIPROFLOXACIN
     Indication: PROPHYLAXIS
  11. RITUXIMAB. [Suspect]
     Active Substance: RITUXIMAB
     Indication: B-CELL LYMPHOMA
     Dosage: UNK
     Route: 042
  12. CYCLOPHOSPHAMIDE. [Suspect]
     Active Substance: CYCLOPHOSPHAMIDE
     Dosage: 1545 MG, CYCLIC (ONCE PER CYCLE)
     Route: 042
     Dates: start: 20171121
  13. BISOPROLOL [Concomitant]
     Active Substance: BISOPROLOL
     Indication: HYPERTENSION
     Dosage: 5 MG, QD
     Route: 048
     Dates: start: 20170101
  14. PANTOPRAZOL [Concomitant]
     Active Substance: PANTOPRAZOLE SODIUM
     Dosage: 40 MG, QD
     Route: 048
     Dates: start: 2017
  15. DIPYRONE MONOHYDRATE [Concomitant]
     Active Substance: DIPYRONE
     Indication: PAIN
     Dosage: 30 GTT, QID (4 IN 1D) (120 DRP)
     Route: 048
     Dates: start: 2017
  16. PEGFILGRASTIM [Suspect]
     Active Substance: PEGFILGRASTIM
     Indication: B-CELL LYMPHOMA
     Dosage: 6 MG, CYCLIC (ONCE PER CYCLE)
     Route: 058
     Dates: start: 20171124
  17. TRIMETHOPRIM SULFAMETHOXAZOLE [Concomitant]
     Active Substance: SULFAMETHOXAZOLE\TRIMETHOPRIM
     Indication: PROPHYLAXIS
     Dosage: 960 MG, (MONDAY, WEDNESDAY, FRIDAY)
     Route: 048
  18. DIPYRONE [Concomitant]
     Active Substance: DIPYRONE
     Indication: PAIN
     Dosage: 30 DF, QID
     Route: 065
     Dates: start: 20170101
  19. DOXORUBICIN [Suspect]
     Active Substance: DOXORUBICIN
     Indication: B-CELL LYMPHOMA
     Dosage: 103 MG, CYCLIC (ONCE PER CYCLE)
     Route: 042
     Dates: start: 20171121
  20. CYCLOPHOSPHAMIDE. [Suspect]
     Active Substance: CYCLOPHOSPHAMIDE
     Indication: B-CELL LYMPHOMA
     Dosage: UNK
     Route: 042
  21. INSULIN HUMAN [Concomitant]
     Active Substance: INSULIN HUMAN
     Indication: DIABETES MELLITUS
     Dosage: UNK, PRN (ACCORDING TO THE PAIN)
     Route: 048
  22. LEVOTHYROXINE SODIUM. [Concomitant]
     Active Substance: LEVOTHYROXINE SODIUM
     Indication: THYROID OPERATION
     Dosage: 150 UG, QD
     Route: 048
     Dates: start: 20170101
  23. RAMIPRIL. [Concomitant]
     Active Substance: RAMIPRIL
     Indication: HYPERTENSION
     Dosage: 5 MG, QD (AS REQUIRED)
     Route: 048
     Dates: start: 20170101
  24. AMLODIPINE [Concomitant]
     Active Substance: AMLODIPINE BESYLATE
     Indication: HYPERTENSION
     Dosage: 5 MG, QD
     Route: 048
     Dates: start: 20170101
  25. CIPROFLOXACIN. [Concomitant]
     Active Substance: CIPROFLOXACIN
     Indication: NEUTROPENIA
     Dosage: 500 MG, UNK
     Route: 048
  26. PREGABALIN. [Concomitant]
     Active Substance: PREGABALIN
     Indication: POLYNEUROPATHY
     Dosage: 150 MG, UNK
     Route: 048
  27. RITUXIMAB. [Suspect]
     Active Substance: RITUXIMAB
     Dosage: 761 MG, CYCLIC (ONCE PER CYCLE)
     Route: 042
     Dates: start: 20171116
  28. VINCRISTINE [Suspect]
     Active Substance: VINCRISTINE
     Indication: B-CELL LYMPHOMA
     Dosage: 2 MG, CYCLIC (ONCE PER CYCLE)
     Route: 042
     Dates: start: 20171121
  29. LEVOTHYROXINE SODIUM. [Concomitant]
     Active Substance: LEVOTHYROXINE SODIUM
     Dosage: 150 UG,QD
     Route: 048
     Dates: start: 2017
  30. ENOXAPARIN SODIUM. [Concomitant]
     Active Substance: ENOXAPARIN SODIUM
     Indication: PROPHYLAXIS
     Dosage: 2 ML, QD (FOR 29 DAYS)
     Route: 058
     Dates: start: 20171219, end: 20180116
  31. SULFAMETHOXAZOLE [Concomitant]
     Active Substance: SULFAMETHOXAZOLE
     Indication: PROPHYLAXIS
     Dosage: 960 MG,UNK
     Route: 048
  32. DIPYRONE [Concomitant]
     Active Substance: DIPYRONE
     Dosage: 30 DF, QID
     Dates: start: 2017
  33. TORSEMIDE. [Concomitant]
     Active Substance: TORSEMIDE
     Indication: HYPERTENSION
     Dosage: 5 MG, QD
     Route: 048
     Dates: start: 20170101
  34. ACICLOVIR [Concomitant]
     Active Substance: ACYCLOVIR
     Indication: PROPHYLAXIS
     Dosage: 200 MG, TID
     Route: 048
     Dates: start: 20170101
  35. ACICLOVIR [Concomitant]
     Active Substance: ACYCLOVIR
     Dosage: 200 MG,TID
     Route: 048
     Dates: start: 2017
  36. METAMIZOL NATRIUM [Concomitant]
     Indication: PAIN
     Dosage: 30 GTT, QID (4 IN 1D)
     Route: 048
     Dates: start: 20170101
  37. METAMIZOL NATRIUM [Concomitant]
     Dosage: 30 DF,QID
     Route: 048
     Dates: start: 2017
  38. HYDROMORPHONE [Concomitant]
     Active Substance: HYDROMORPHONE
     Indication: PAIN
     Dosage: 4 MG,BID
     Route: 048
     Dates: start: 20170101
  39. TIMOLOL. [Concomitant]
     Active Substance: TIMOLOL
     Indication: OCULAR HYPERTENSION
     Route: 047
  40. PEGFILGRASTIM [Suspect]
     Active Substance: PEGFILGRASTIM
     Dosage: 6 MG,QCY
     Route: 058
  41. BISOPROLOL [Concomitant]
     Active Substance: BISOPROLOL
     Dosage: 5 MG,QD
     Route: 048
     Dates: start: 2017
  42. PANTOPRAZOL [Concomitant]
     Active Substance: PANTOPRAZOLE SODIUM
     Indication: PROPHYLAXIS
     Dosage: 40 MG, QD
     Route: 048
     Dates: start: 20170101
  43. AMLODIPINE [Concomitant]
     Active Substance: AMLODIPINE BESYLATE
     Indication: HYPERTENSION
     Dosage: 5 MG,QD
     Route: 048
     Dates: start: 2017
  44. INSULIN GLARGINE [Concomitant]
     Active Substance: INSULIN GLARGINE
     Indication: DIABETES MELLITUS
     Dosage: 4 IU, QD
     Route: 058
     Dates: start: 20171225

REACTIONS (4)
  - Pyrexia [Recovered/Resolved]
  - Urinary tract infection [Unknown]
  - Device related infection [Recovered/Resolved]
  - Infection [Recovered/Resolved]

NARRATIVE: CASE EVENT DATE: 20171219
